FAERS Safety Report 4426514-6 (Version None)
Quarter: 2004Q3

REPORT INFORMATION
  Report Type: 
  Country: None (occurrence: None)
  Receive Date: 20040812
  Receipt Date: 20040812
  Transmission Date: 20050211
  Serious: Yes (Hospitalization)
  Sender: FDA-Public Use
  Company Number: None

PATIENT
  Age: 60 Year
  Sex: Male
  Weight: 103.9 kg

DRUGS (14)
  1. FOSINOPRIL SODIUM [Suspect]
     Indication: HYPERTENSION
     Dosage: 40 MG   DAILY   ORAL
     Route: 048
  2. SPIRONOLACTONE [Suspect]
     Indication: HYPERALDOSTERONISM
     Dosage: 50 MG   BID   ORAL
     Route: 048
  3. KCL TAB [Concomitant]
  4. ARIPRAZOLE [Concomitant]
  5. ASPIRIN [Concomitant]
  6. CHLORTHALIDONE [Concomitant]
  7. DOCUSATE NA [Concomitant]
  8. FELODIPINE [Concomitant]
  9. GLIPIZIDE [Concomitant]
  10. METOPROLOL [Concomitant]
  11. MIRTAZAPINE [Concomitant]
  12. M.V.I. [Concomitant]
  13. NICOTINE [Concomitant]
  14. RANITIDINE [Concomitant]

REACTIONS (3)
  - ELECTROCARDIOGRAM T WAVE ABNORMAL [None]
  - HYPERKALAEMIA [None]
  - RENAL FAILURE ACUTE [None]
